FAERS Safety Report 11818796 (Version 3)
Quarter: 2016Q4

REPORT INFORMATION
  Report Type: Spontaneous
  Country: US (occurrence: US)
  Receive Date: 20151210
  Receipt Date: 20161117
  Transmission Date: 20170206
  Serious: Yes (Hospitalization)
  Sender: FDA-Public Use
  Company Number: US-JNJFOC-20151110233

PATIENT
  Age: 12 Year
  Sex: Male

DRUGS (3)
  1. RISPERDAL [Suspect]
     Active Substance: RISPERIDONE
     Indication: INSOMNIA
     Dosage: VARIED DOSE OF 0.5 MG, 1 MG AND 1.5MG
     Route: 048
     Dates: start: 2014, end: 20150113
  2. RISPERDAL [Suspect]
     Active Substance: RISPERIDONE
     Indication: PSYCHOTIC DISORDER
     Dosage: VARIED DOSE OF 0.5 MG, 1 MG AND 1.5MG
     Route: 048
     Dates: start: 2014, end: 20150113
  3. RISPERIDONE. [Suspect]
     Active Substance: RISPERIDONE
     Indication: PRODUCT USED FOR UNKNOWN INDICATION
     Route: 048

REACTIONS (4)
  - Suicidal ideation [Recovered/Resolved]
  - Abnormal weight gain [Unknown]
  - Blood prolactin increased [Unknown]
  - Gynaecomastia [Unknown]

NARRATIVE: CASE EVENT DATE: 201501
